FAERS Safety Report 10514077 (Version 3)
Quarter: 2015Q2

REPORT INFORMATION
  Report Type: Spontaneous
  Country: CH (occurrence: CH)
  Receive Date: 20141013
  Receipt Date: 20150608
  Transmission Date: 20150821
  Serious: Yes (Life-Threatening, Hospitalization, Other)
  Sender: FDA-Public Use
  Company Number: CH-PFIZER INC-2014279665

PATIENT
  Age: 75 Year
  Sex: Female

DRUGS (8)
  1. XELJANZ [Suspect]
     Active Substance: TOFACITINIB CITRATE
     Indication: RHEUMATOID ARTHRITIS
     Dosage: 5 MG, 2X/DAY
     Dates: start: 20140319, end: 20140926
  2. LODOTRA [Suspect]
     Active Substance: PREDNISONE
     Indication: RHEUMATOID ARTHRITIS
     Dosage: 2 MG, 1X/DAY (0-0-0-1)
     Route: 048
     Dates: start: 20140520
  3. LODOTRA [Suspect]
     Active Substance: PREDNISONE
     Dosage: 5 MG, 1X/DAY (0-0-0-1)
     Dates: start: 20140203
  4. PROLIA [Concomitant]
     Active Substance: DENOSUMAB
     Dosage: 60 MG, UNK
     Dates: start: 20140319, end: 20140319
  5. METHOTREXATE SODIUM. [Concomitant]
     Active Substance: METHOTREXATE SODIUM
     Indication: RHEUMATOID ARTHRITIS
     Dosage: 10 MG, WEEKLY
     Route: 058
     Dates: start: 2006, end: 201409
  6. METHOTREXATE SODIUM. [Concomitant]
     Active Substance: METHOTREXATE SODIUM
     Dosage: 10 MG, WEEKLY
     Route: 058
     Dates: start: 201410
  7. CALPEROS D3 [Concomitant]
     Active Substance: CALCIUM CARBONATE\CHOLECALCIFEROL
     Indication: OSTEOPOROSIS
     Dosage: 500/400, 2X/DAY (1-0-1)
     Route: 048
     Dates: start: 20140430
  8. CALCIMAGON-D3 [Concomitant]
     Active Substance: CALCIUM\CHOLECALCIFEROL
     Dosage: UNK, 1X/DAY (IN THE MORNING)
     Dates: start: 20140203

REACTIONS (6)
  - Pneumonia viral [Recovered/Resolved]
  - Clostridial infection [Unknown]
  - Diarrhoea [Unknown]
  - Oral candidiasis [Unknown]
  - Pyrexia [Unknown]
  - Blood pressure increased [Unknown]

NARRATIVE: CASE EVENT DATE: 20140923
